FAERS Safety Report 21104656 (Version 1)
Quarter: 2022Q3

REPORT INFORMATION
  Report Type: Spontaneous
  Country: IT (occurrence: IT)
  Receive Date: 20220720
  Receipt Date: 20220720
  Transmission Date: 20221026
  Serious: Yes (Other)
  Sender: FDA-Public Use
  Company Number: IT-MYLANLABS-2022M1079133

PATIENT
  Age: 2 Year
  Sex: Male

DRUGS (12)
  1. PREDNISONE [Suspect]
     Active Substance: PREDNISONE
     Indication: Evans syndrome
     Dosage: 2 MG/KG/DIE; RECEIVED AFTER SECOND EPISODE OF IMMUNE THROMBOCYTOPENIA
     Route: 065
     Dates: start: 2016
  2. PREDNISONE [Suspect]
     Active Substance: PREDNISONE
     Indication: Immune thrombocytopenia
     Dosage: 2 MG/KG/DIE; RECEIVED AFTER FLARE OF ES
     Route: 065
     Dates: start: 2020
  3. IMMUNE GLOBULIN NOS [Suspect]
     Active Substance: IMMUNE GLOBULIN NOS
     Indication: Immune thrombocytopenia
     Dosage: 0.8 GRAM/KILOGRAM; RECEIVED AFTER FIRST EPISODE OF IMMUNE THROMBOCYTOPENIA
     Route: 042
     Dates: start: 2008
  4. IMMUNE GLOBULIN NOS [Suspect]
     Active Substance: IMMUNE GLOBULIN NOS
     Indication: Evans syndrome
     Dosage: 1 GRAM PER KILOGRAM, FOUR DOSES; RECEIVED AFTER SECOND EPISODE OF IMMUNE THROMBOCYTOPENIA
     Route: 042
     Dates: start: 2016
  5. IMMUNE GLOBULIN NOS [Suspect]
     Active Substance: IMMUNE GLOBULIN NOS
     Indication: Autoimmune haemolytic anaemia
     Dosage: 1 GRAM PER KILOGRAM,  FOUR DOSES; RECEIVED AFTER FLARE OF ES
     Route: 042
     Dates: start: 2020
  6. MYCOPHENOLATE MOFETIL [Suspect]
     Active Substance: MYCOPHENOLATE MOFETIL
     Indication: Evans syndrome
     Dosage: UNK UNK, BID (600 MG/MQ; RECEIVED AFTER SECOND EPISODE OF IMMUNE THROMBOCYTOPENIA)
     Route: 065
     Dates: start: 2016
  7. MYCOPHENOLATE MOFETIL [Suspect]
     Active Substance: MYCOPHENOLATE MOFETIL
     Indication: Immune thrombocytopenia
  8. ELTROMBOPAG [Suspect]
     Active Substance: ELTROMBOPAG
     Indication: Evans syndrome
     Dosage: UP TO 75 MG/DIE; RECEIVED AFTER SECOND EPISODE OF IMMUNE THROMBOCYTOPENIA
     Route: 065
     Dates: start: 2016
  9. ELTROMBOPAG [Suspect]
     Active Substance: ELTROMBOPAG
     Indication: Immune thrombocytopenia
     Dosage: UP TO 100 MG/DIE; RECEIVED AFTER FLARE OF ES
     Route: 065
     Dates: start: 2020
  10. SIROLIMUS [Suspect]
     Active Substance: SIROLIMUS
     Indication: Evans syndrome
     Dosage: 2 MG/DIE; RECEIVED AFTER SECOND EPISODE OF IMMUNE THROMBOCYTOPENIA
     Route: 065
     Dates: start: 2016
  11. SIROLIMUS [Suspect]
     Active Substance: SIROLIMUS
     Indication: Immune thrombocytopenia
     Dosage: 5 MG/DIE
     Route: 065
     Dates: start: 202003, end: 202011
  12. RITUXIMAB [Suspect]
     Active Substance: RITUXIMAB
     Indication: Evans syndrome
     Dosage: 375 MG/MQ/WEEK; RECEIVED AFTER FLARE OF ES
     Route: 065
     Dates: start: 2020

REACTIONS (1)
  - Drug ineffective [Unknown]
